FAERS Safety Report 10064083 (Version 1)
Quarter: 2014Q2

REPORT INFORMATION
  Report Type: Spontaneous
  Country: US (occurrence: None)
  Receive Date: 20140404
  Receipt Date: 20140404
  Transmission Date: 20141212
  Serious: Yes (Death, Hospitalization)
  Sender: FDA-Public Use
  Company Number: DAV-AE-MTX-14-08

PATIENT
  Age: 42 Year
  Sex: Female

DRUGS (7)
  1. METHOTREXATE [Suspect]
     Indication: T-CELL TYPE ACUTE LEUKAEMIA
     Dosage: HIGH-DOSE, INTRATHECAL
     Route: 037
  2. CYTARABINE [Concomitant]
  3. HYDROCORTISONE [Concomitant]
  4. NELARABINE [Concomitant]
  5. CYCLOPHOSPHAMIDE [Concomitant]
  6. VINCRISTINE [Concomitant]
  7. DOXORUBICIN [Concomitant]

REACTIONS (3)
  - Hypoaesthesia [None]
  - Muscular weakness [None]
  - Loss of proprioception [None]
